FAERS Safety Report 6318929 (Version 3)
Quarter: 2012Q4

REPORT INFORMATION
  Report Type: 
  Country: US (occurrence: US)
  Receive Date: 20070523
  Receipt Date: 20121017
  Transmission Date: 20130627
  Serious: Yes (Other)
  Sender: FDA-Public Use
  Company Number: US-PFIZER INC-2007039732

PATIENT
  Age: 55 Year
  Sex: Female
  Weight: 66 kg

DRUGS (11)
  1. PROVERA [Suspect]
     Indication: HORMONE REPLACEMENT THERAPY
     Dosage: 5 mg, UNK
     Route: 048
     Dates: start: 1990, end: 1991
  2. PROVERA [Suspect]
     Dosage: 5 mg, UNK
     Route: 048
     Dates: start: 1996, end: 1996
  3. PROVERA [Suspect]
     Dosage: 5 mg, UNK
     Route: 048
     Dates: start: 1999, end: 2003
  4. PREMARIN [Suspect]
     Indication: HORMONE REPLACEMENT THERAPY
     Dosage: 0.625 mg, UNK
     Route: 048
     Dates: start: 1990, end: 2003
  5. MEDROXYPROGESTERONE ACETATE [Suspect]
     Indication: HORMONE REPLACEMENT THERAPY
     Dosage: 5 mg, UNK
     Route: 048
     Dates: start: 1990, end: 1991
  6. MEDROXYPROGESTERONE ACETATE [Suspect]
     Dosage: 5 mg, UNK
     Route: 048
     Dates: start: 1996, end: 1996
  7. MEDROXYPROGESTERONE ACETATE [Suspect]
     Dosage: 5 mg, UNK
     Route: 048
     Dates: start: 1999, end: 2003
  8. MEDROXYPROGESTERONE ACETATE [Suspect]
     Indication: HORMONE REPLACEMENT THERAPY
     Dosage: 5 mg, UNK
     Route: 048
     Dates: start: 200001, end: 200102
  9. CYCRIN [Suspect]
     Indication: HORMONE REPLACEMENT THERAPY
     Dosage: 10 mg, UNK
     Route: 048
     Dates: start: 199802
  10. AMEN [Suspect]
     Indication: HORMONE REPLACEMENT THERAPY
     Dosage: 10 mg, UNK
     Route: 048
     Dates: start: 1990, end: 1993
  11. NORVASC [Concomitant]
     Indication: BLOOD PRESSURE
     Dosage: UNK
     Dates: start: 1995

REACTIONS (1)
  - Breast cancer female [Unknown]
